FAERS Safety Report 6820771-4 (Version None)
Quarter: 2010Q3

REPORT INFORMATION
  Report Type: 
  Country: None (occurrence: None)
  Receive Date: 20100707
  Receipt Date: 20070509
  Transmission Date: 20110219
  Serious: No
  Sender: FDA-Public Use
  Company Number: US-PFIZER INC-2007037734

PATIENT

DRUGS (2)
  1. ZOLOFT [Suspect]
     Dates: end: 20070401
  2. ZYPREXA [Interacting]

REACTIONS (2)
  - ABNORMAL BEHAVIOUR [None]
  - DRUG INTERACTION [None]
